FAERS Safety Report 18813834 (Version 1)
Quarter: 2021Q1

REPORT INFORMATION
  Report Type: Other
  Country: US (occurrence: US)
  Receive Date: 20210201
  Receipt Date: 20210201
  Transmission Date: 20210419
  Serious: Yes (Death)
  Sender: FDA-Public Use
  Company Number: US-ROCHE-2745930

PATIENT
  Age: 51 Year
  Sex: Male

DRUGS (7)
  1. OCREVUS [Suspect]
     Active Substance: OCRELIZUMAB
     Indication: RELAPSING MULTIPLE SCLEROSIS
     Dosage: PRESCRIBED WITH 300 MG DAY 1 AND DAY 15 THEN 600 MG ONCE EVERY 6 MONTHS?DATE OF TREATMENT: 31/DEC/20
     Route: 042
     Dates: start: 20191231, end: 20200714
  2. OCREVUS [Suspect]
     Active Substance: OCRELIZUMAB
     Indication: SECONDARY PROGRESSIVE MULTIPLE SCLEROSIS
     Route: 042
     Dates: start: 20200714
  3. BACLOFEN. [Concomitant]
     Active Substance: BACLOFEN
  4. METHYLPHENIDATE. [Concomitant]
     Active Substance: METHYLPHENIDATE
  5. REVATIO [Concomitant]
     Active Substance: SILDENAFIL CITRATE
  6. RITUXAN [Suspect]
     Active Substance: RITUXIMAB
     Indication: MULTIPLE SCLEROSIS
     Route: 065
     Dates: start: 201906
  7. VALIUM [Concomitant]
     Active Substance: DIAZEPAM

REACTIONS (4)
  - Acute myocardial infarction [Fatal]
  - Cardiac arrest [Fatal]
  - Electrocardiogram QT prolonged [Fatal]
  - Ventricular arrhythmia [Fatal]

NARRATIVE: CASE EVENT DATE: 20201219
